FAERS Safety Report 8606823-7 (Version None)
Quarter: 2012Q3

REPORT INFORMATION
  Report Type: 
  Country: None (occurrence: None)
  Receive Date: 20120820
  Receipt Date: 20120816
  Transmission Date: 20120928
  Serious: Yes (Hospitalization)
  Sender: FDA-Public Use
  Company Number: FR-ROCHE-1084261

PATIENT
  Sex: Female
  Weight: 69 kg

DRUGS (10)
  1. MOTILIUM [Concomitant]
     Indication: NAUSEA
     Dates: start: 20120308
  2. MOTILIUM [Concomitant]
     Indication: ABDOMINAL PAIN UPPER
     Dates: start: 20110901
  3. CLAMOXYL (FRANCE) [Concomitant]
     Indication: PRODUCTIVE COUGH
     Dates: start: 20120405, end: 20120413
  4. VISMODEGIB [Suspect]
     Indication: NEOPLASM MALIGNANT
     Dosage: LAST DOSE PRIOR TO SAE WAS TAKEN ON 25/JUN/2012
     Route: 048
     Dates: start: 20110725
  5. FERROUS SULFATE TAB [Concomitant]
     Indication: ANAEMIA
     Dates: start: 20120420
  6. MIOREL [Concomitant]
     Dates: start: 20120605, end: 20120606
  7. SPASFON [Concomitant]
     Indication: ABDOMINAL PAIN UPPER
     Dates: start: 20110805
  8. RANITIDINE [Concomitant]
     Indication: ABDOMINAL PAIN UPPER
     Dates: start: 20120112
  9. MUCOMYST [Concomitant]
     Indication: PRODUCTIVE COUGH
     Dates: start: 20120405, end: 20120413
  10. ATORVASTATIN [Concomitant]
     Indication: HYPERCHOLESTEROLAEMIA
     Dates: start: 20110401, end: 20120111

REACTIONS (1)
  - SMALL INTESTINAL PERFORATION [None]
